FAERS Safety Report 23984516 (Version 1)
Quarter: 2024Q2

REPORT INFORMATION
  Report Type: Spontaneous
  Country: GB (occurrence: GB)
  Receive Date: 20240618
  Receipt Date: 20240618
  Transmission Date: 20240716
  Serious: Yes (Other)
  Sender: FDA-Public Use
  Company Number: None

PATIENT
  Sex: Female

DRUGS (3)
  1. DULOXETINE HYDROCHLORIDE [Suspect]
     Active Substance: DULOXETINE HYDROCHLORIDE
     Indication: Bladder irritation
     Dosage: UNK
     Route: 065
     Dates: start: 20210403, end: 20210422
  2. DULOXETINE HYDROCHLORIDE [Suspect]
     Active Substance: DULOXETINE HYDROCHLORIDE
     Indication: Neuropathy peripheral
     Dosage: 1 DOSAGE FORM, QD
     Route: 065
     Dates: start: 20210415, end: 20210422
  3. SOLIFENACIN [Suspect]
     Active Substance: SOLIFENACIN
     Indication: Bladder irritation
     Dosage: 1 DOSAGE FORM, QD
     Route: 065
     Dates: start: 20210403, end: 20210422

REACTIONS (1)
  - Delirium [Recovered/Resolved]

NARRATIVE: CASE EVENT DATE: 20210422
